FAERS Safety Report 7673168-1 (Version None)
Quarter: 2011Q3

REPORT INFORMATION
  Report Type: 
  Country: None (occurrence: None)
  Receive Date: 20110810
  Receipt Date: 20110802
  Transmission Date: 20111222
  Serious: No
  Sender: FDA-Public Use
  Company Number: US-BIOGENIDEC-2011BI028946

PATIENT
  Sex: Female

DRUGS (4)
  1. AVONEX [Concomitant]
     Indication: MULTIPLE SCLEROSIS
     Route: 030
     Dates: start: 20010817
  2. TYSABRI [Suspect]
     Indication: MULTIPLE SCLEROSIS
     Route: 042
     Dates: start: 20110420
  3. GABAPENTIN [Concomitant]
  4. BACLOFEN [Concomitant]

REACTIONS (8)
  - HYPOAESTHESIA [None]
  - MUSCLE TIGHTNESS [None]
  - GENERAL PHYSICAL HEALTH DETERIORATION [None]
  - MUSCLE SPASMS [None]
  - GAIT DISTURBANCE [None]
  - CHEST PAIN [None]
  - MALAISE [None]
  - BACK PAIN [None]
